FAERS Safety Report 13114938 (Version 3)
Quarter: 2017Q1

REPORT INFORMATION
  Report Type: Spontaneous
  Country: US (occurrence: US)
  Receive Date: 20170113
  Receipt Date: 20170213
  Transmission Date: 20170428
  Serious: No
  Sender: FDA-Public Use
  Company Number: US-PFIZER INC-2017015736

PATIENT
  Sex: Female

DRUGS (4)
  1. BUPIVACAINE HCL [Suspect]
     Active Substance: BUPIVACAINE HYDROCHLORIDE
     Indication: SPINAL ANAESTHESIA
     Dosage: 0.7 PERCENT
     Route: 037
     Dates: start: 20170111, end: 20170111
  2. DURAMORPH [Concomitant]
     Active Substance: MORPHINE SULFATE
     Dosage: UNK, ONE TIME DOSE
     Dates: start: 20170111, end: 20170111
  3. FENTANYL. [Concomitant]
     Active Substance: FENTANYL
     Dosage: UNK, ONE TIME DOSE
     Dates: start: 20170111, end: 20170111
  4. MORPHINE [Concomitant]
     Active Substance: MORPHINE
     Dosage: UNK, ONE TIME DOSE
     Dates: start: 20170111, end: 20170111

REACTIONS (1)
  - Drug ineffective [Recovered/Resolved]

NARRATIVE: CASE EVENT DATE: 20170111
